FAERS Safety Report 8526759 (Version 5)
Quarter: 2013Q2

REPORT INFORMATION
  Report Type: Report from Study
  Country: CA (occurrence: CA)
  Receive Date: 20120423
  Receipt Date: 20130607
  Transmission Date: 20140414
  Serious: Yes (Death, Other)
  Sender: FDA-Public Use
  Company Number: CA-PFIZER INC-2012095891

PATIENT
  Age: 10 Month
  Sex: Male
  Weight: 8.6 kg

DRUGS (6)
  1. SILDENAFIL CITRATE [Suspect]
     Indication: PULMONARY HYPERTENSION
     Dosage: 6.25 MG, 4X/DAY
     Route: 048
     Dates: start: 20111212
  2. ALDACTAZIDE [Concomitant]
     Indication: DIURETIC THERAPY
     Dosage: UNK
     Route: 048
     Dates: start: 201109
  3. LASIX [Concomitant]
     Indication: DIURETIC THERAPY
     Dosage: UNK
     Route: 048
     Dates: start: 201107
  4. BUDESONIDE [Concomitant]
     Indication: BRONCHOSPASM
     Dosage: UNK
     Route: 055
  5. VENTOLIN [Concomitant]
     Indication: BRONCHOSPASM
     Dosage: UNK
     Route: 055
  6. PALIVIZUMAB [Concomitant]
     Indication: IMMUNISATION

REACTIONS (3)
  - Arteriovenous malformation [Fatal]
  - Pulmonary hypertension [Fatal]
  - Pneumonia [Recovered/Resolved]
